FAERS Safety Report 6916603-6 (Version None)
Quarter: 2010Q3

REPORT INFORMATION
  Report Type: 
  Country: None (occurrence: None)
  Receive Date: 20100809
  Receipt Date: 20100809
  Transmission Date: 20110219
  Serious: Yes (Other)
  Sender: FDA-Public Use
  Company Number: None

PATIENT
  Age: 62 Year
  Sex: Female
  Weight: 70 kg

DRUGS (2)
  1. SARGRAMOSTIM 500 MCG GENZYME [Suspect]
     Indication: HERPES SIMPLEX
     Dosage: 500 MCG DAILY SQ
     Route: 058
     Dates: start: 20100731, end: 20100805
  2. SARGRAMOSTIM 500 MCG GENZYME [Suspect]
     Indication: NEUTROPENIA
     Dosage: 500 MCG DAILY SQ
     Route: 058
     Dates: start: 20100731, end: 20100805

REACTIONS (6)
  - ATELECTASIS [None]
  - CAPILLARY LEAK SYNDROME [None]
  - GENERALISED OEDEMA [None]
  - HYPOXIA [None]
  - TACHYPNOEA [None]
  - WEIGHT INCREASED [None]
